FAERS Safety Report 9032387 (Version 3)
Quarter: 2013Q2

REPORT INFORMATION
  Report Type: Report from Study
  Country: FR (occurrence: FR)
  Receive Date: 20130125
  Receipt Date: 20130415
  Transmission Date: 20140414
  Serious: Yes (Death)
  Sender: FDA-Public Use
  Company Number: FR-BAXTER-2013BAX002716

PATIENT
  Age: 39 Year
  Sex: Male

DRUGS (18)
  1. ENDOXAN 2000 MG, LYOPHILISAT POUR SOLUTION INJECTABLE [Suspect]
     Indication: IMMUNOSUPPRESSION
     Route: 042
     Dates: start: 20120306, end: 20120522
  2. OCRELIZUMAB [Suspect]
     Indication: LUPUS NEPHRITIS
     Route: 042
     Dates: start: 20080505
  3. OCRELIZUMAB [Suspect]
     Route: 042
     Dates: start: 20081219
  4. OCRELIZUMAB [Suspect]
     Route: 042
     Dates: start: 20090624
  5. OCRELIZUMAB [Suspect]
     Route: 042
     Dates: start: 20091014
  6. AZATHIOPRINE [Suspect]
     Indication: IMMUNOSUPPRESSION
     Route: 065
     Dates: start: 200603, end: 20080502
  7. AZATHIOPRINE [Suspect]
     Route: 048
     Dates: start: 20120523, end: 20121219
  8. PREDNISONE [Suspect]
     Indication: LUPUS NEPHRITIS
     Route: 048
     Dates: start: 20080423
  9. PREDNISONE [Suspect]
     Route: 065
     Dates: start: 200801, end: 20121219
  10. PREDNISONE [Suspect]
     Route: 065
     Dates: start: 20121214, end: 20121219
  11. MYCOPHENOLATE MOFETIL [Suspect]
     Indication: PRODUCT USED FOR UNKNOWN INDICATION
     Route: 048
     Dates: start: 20080505, end: 20080512
  12. MYCOPHENOLATE MOFETIL [Suspect]
     Route: 048
     Dates: start: 20080513, end: 20080519
  13. MYCOPHENOLATE MOFETIL [Suspect]
     Route: 048
     Dates: start: 20080520, end: 20080522
  14. MYCOPHENOLATE MOFETIL [Suspect]
     Route: 048
     Dates: start: 20080523, end: 20110913
  15. MYCOPHENOLATE MOFETIL [Suspect]
     Route: 048
     Dates: start: 20110914, end: 20120305
  16. HYDROXYCHLOROQUINE [Concomitant]
     Indication: PRODUCT USED FOR UNKNOWN INDICATION
     Route: 065
  17. RAMIPRIL [Concomitant]
     Indication: PRODUCT USED FOR UNKNOWN INDICATION
     Route: 065
     Dates: start: 200603, end: 20121219
  18. RAMIPRIL [Concomitant]
     Route: 065
     Dates: start: 200603, end: 20121219

REACTIONS (5)
  - Legionella infection [Fatal]
  - Multi-organ failure [Fatal]
  - Septic shock [Fatal]
  - Acute respiratory distress syndrome [Fatal]
  - Pneumonia [Fatal]
